FAERS Safety Report 22141850 (Version 2)
Quarter: 2023Q2

REPORT INFORMATION
  Report Type: Spontaneous
  Country: US (occurrence: US)
  Receive Date: 20230327
  Receipt Date: 20230406
  Transmission Date: 20230722
  Serious: No
  Sender: FDA-Public Use
  Company Number: US-ELI_LILLY_AND_COMPANY-US202303011718

PATIENT
  Sex: Female

DRUGS (6)
  1. BASAGLAR [Suspect]
     Active Substance: INSULIN GLARGINE
     Indication: Type 2 diabetes mellitus
     Dosage: 20 U, DAILY
     Route: 065
  2. BASAGLAR [Suspect]
     Active Substance: INSULIN GLARGINE
     Indication: Type 2 diabetes mellitus
     Dosage: 20 U, DAILY
     Route: 065
  3. BASAGLAR [Suspect]
     Active Substance: INSULIN GLARGINE
     Dosage: 20 U, DAILY
     Route: 065
  4. BASAGLAR [Suspect]
     Active Substance: INSULIN GLARGINE
     Dosage: 20 U, DAILY
     Route: 065
  5. NOVOLIN U [INSULIN HUMAN ZINC SUSPENSION] [Concomitant]
     Indication: Type 2 diabetes mellitus
     Dosage: 52 U, DAILY
     Route: 065
  6. NOVOLIN U [INSULIN HUMAN ZINC SUSPENSION] [Concomitant]
     Dosage: 28 U, DAILY
     Route: 065

REACTIONS (3)
  - Cataract [Unknown]
  - Incorrect dose administered [Unknown]
  - Visual impairment [Unknown]
